FAERS Safety Report 9098716 (Version 1)
Quarter: 2013Q1

REPORT INFORMATION
  Report Type: Spontaneous
  Country: US (occurrence: US)
  Receive Date: 20130213
  Receipt Date: 20130213
  Transmission Date: 20140127
  Serious: No
  Sender: FDA-Public Use
  Company Number: US-TEVA-350727USA

PATIENT
  Sex: Male
  Weight: 81.72 kg

DRUGS (1)
  1. AMRIX [Suspect]
     Indication: MUSCLE SPASMS
     Route: 048
     Dates: start: 201202

REACTIONS (1)
  - Muscle spasms [Recovered/Resolved]
